FAERS Safety Report 9636205 (Version 3)
Quarter: 2014Q1

REPORT INFORMATION
  Report Type: Spontaneous
  Country: IT (occurrence: IT)
  Receive Date: 20131021
  Receipt Date: 20140116
  Transmission Date: 20141002
  Serious: Yes (Hospitalization)
  Sender: FDA-Public Use
  Company Number: IT-PFIZER INC-2013298319

PATIENT
  Age: 78 Year
  Sex: Female

DRUGS (9)
  1. XANAX [Suspect]
     Dosage: 7+7+12 DROPS DAILY
     Route: 048
  2. XANAX [Suspect]
     Dosage: 24 GTT, TOTAL
     Route: 048
     Dates: start: 20131011, end: 20131011
  3. OMEGA-3-ACID ETHYL ESTER [Concomitant]
     Dosage: UNK
  4. PARACETAMOL [Concomitant]
     Indication: ARTHRALGIA
     Dosage: 1 G, UNK
     Route: 048
     Dates: start: 20131011, end: 20131011
  5. NORVASC [Concomitant]
     Dosage: 7.5 MG, UNK
     Route: 048
  6. LOBIVON [Concomitant]
     Dosage: UNK
  7. JANUVIA [Concomitant]
     Dosage: UNK
  8. NOVONORM [Concomitant]
     Dosage: 3 MG, UNK
     Route: 048
  9. TORVAST [Concomitant]
     Dosage: UNK

REACTIONS (4)
  - Accidental overdose [Recovered/Resolved]
  - Confusional state [Recovered/Resolved]
  - Dysarthria [Recovered/Resolved]
  - Drug abuse [Recovered/Resolved]
